FAERS Safety Report 4475174-7 (Version None)
Quarter: 2004Q4

REPORT INFORMATION
  Report Type: 
  Country: None (occurrence: None)
  Receive Date: 20041015
  Receipt Date: 20040909
  Transmission Date: 20050328
  Serious: Yes (Death, Hospitalization, Other)
  Sender: FDA-Public Use
  Company Number: US-BRISTOL-MYERS SQUIBB COMPANY-12696340

PATIENT
  Age: 73 Year
  Sex: Male
  Weight: 80 kg

DRUGS (10)
  1. CETUXIMAB [Suspect]
     Indication: NON-SMALL CELL LUNG CANCER
     Dosage: 1ST ON 28-JUN-04.TOTAL GIVEN THIS COURSE 4413MG-1ST DELAYED THEN REMOVED FROM PROTOCOL
     Route: 042
     Dates: start: 20040817, end: 20040817
  2. CARBOPLATIN [Suspect]
     Indication: NON-SMALL CELL LUNG CANCER
     Dates: start: 20040817, end: 20040817
  3. PACLITAXEL [Suspect]
     Indication: NON-SMALL CELL LUNG CANCER
     Dates: start: 20040817, end: 20040817
  4. RADIATION THERAPY [Suspect]
     Indication: NON-SMALL CELL LUNG CANCER
     Dosage: EXTERNAL BEAM,3D -5760PTV
     Dates: start: 20040820, end: 20040820
  5. MAGNESIUM [Suspect]
  6. COMBIVENT [Concomitant]
  7. GLUCOPHAGE [Concomitant]
  8. ZOCOR [Concomitant]
  9. ADVAIR DISKUS 100/50 [Concomitant]
  10. ASPIRIN [Concomitant]

REACTIONS (10)
  - ANOREXIA [None]
  - DIARRHOEA [None]
  - DYSPNOEA [None]
  - FATIGUE [None]
  - HAEMOGLOBIN DECREASED [None]
  - HYPOCALCAEMIA [None]
  - HYPOKALAEMIA [None]
  - NON-SMALL CELL LUNG CANCER [None]
  - OESOPHAGITIS [None]
  - PNEUMONITIS [None]
